FAERS Safety Report 12078007 (Version 1)
Quarter: 2016Q1

REPORT INFORMATION
  Report Type: Report from Study
  Country: US (occurrence: US)
  Receive Date: 20160215
  Receipt Date: 20160215
  Transmission Date: 20160526
  Serious: Yes (Life-Threatening, Hospitalization, Disabling, Other)
  Sender: FDA-Public Use
  Company Number: US-MPIJNJ-2014MPI000672

PATIENT
  Age: 7 Year
  Sex: Female
  Weight: 36.1 kg

DRUGS (7)
  1. CYTARABINE. [Suspect]
     Active Substance: CYTARABINE
     Indication: ACUTE MYELOID LEUKAEMIA
     Dosage: UNK
     Route: 037
     Dates: start: 20140225, end: 20140225
  2. MORPHINE [Suspect]
     Active Substance: MORPHINE
     Indication: PRODUCT USED FOR UNKNOWN INDICATION
     Dosage: UNK
     Route: 065
  3. VELCADE [Suspect]
     Active Substance: BORTEZOMIB
     Indication: ACUTE MYELOID LEUKAEMIA
     Dosage: 1.3 MG/M2, UNK
     Route: 042
     Dates: start: 20140225, end: 20140226
  4. DAUNORUBICIN HYDROCHLORIDE. [Suspect]
     Active Substance: DAUNORUBICIN HYDROCHLORIDE
     Indication: ACUTE MYELOID LEUKAEMIA
     Dosage: 50 MG/M2, UNK
     Route: 042
     Dates: start: 20140225, end: 20140226
  5. ETOPOSIDE. [Suspect]
     Active Substance: ETOPOSIDE
     Indication: ACUTE MYELOID LEUKAEMIA
     Dosage: 100 MG/M2, UNK
     Route: 042
     Dates: start: 20140225, end: 20140226
  6. CYTARABINE. [Suspect]
     Active Substance: CYTARABINE
     Dosage: 100 MG/M2, BID
     Route: 042
     Dates: start: 20140225, end: 20140225
  7. SUFENTANIL [Suspect]
     Active Substance: SUFENTANIL
     Indication: PRODUCT USED FOR UNKNOWN INDICATION
     Dosage: UNK
     Route: 065

REACTIONS (4)
  - Hypotension [Recovered/Resolved with Sequelae]
  - Multiple organ dysfunction syndrome [Recovered/Resolved with Sequelae]
  - Sepsis [Recovered/Resolved with Sequelae]
  - Posterior reversible encephalopathy syndrome [Recovered/Resolved with Sequelae]

NARRATIVE: CASE EVENT DATE: 20140225
